FAERS Safety Report 7043248-2 (Version None)
Quarter: 2010Q4

REPORT INFORMATION
  Report Type: 
  Country: None (occurrence: None)
  Receive Date: 20101013
  Receipt Date: 20091109
  Transmission Date: 20110411
  Serious: No
  Sender: FDA-Public Use
  Company Number: US-ASTRAZENECA-2009SE25361

PATIENT
  Age: 5 Year
  Sex: Female
  Weight: 22.7 kg

DRUGS (3)
  1. SYMBICORT [Suspect]
     Indication: ASTHMA
     Dosage: 640 MG TWO TIMES A DAY
     Route: 055
     Dates: start: 20090501
  2. NASONEX [Concomitant]
  3. VENTOLIN [Concomitant]

REACTIONS (3)
  - COUGH [None]
  - SKIN DISCOLOURATION [None]
  - WHEEZING [None]
